FAERS Safety Report 13069309 (Version 4)
Quarter: 2017Q2

REPORT INFORMATION
  Report Type: Spontaneous
  Country: US (occurrence: US)
  Receive Date: 20161228
  Receipt Date: 20170612
  Transmission Date: 20170830
  Serious: Yes (Hospitalization)
  Sender: FDA-Public Use
  Company Number: US-IMPAX LABORATORIES, INC-2016-IPXL-02452

PATIENT
  Age: 65 Year
  Sex: Male

DRUGS (7)
  1. VITAMIN B COMPLEX [Concomitant]
     Active Substance: CYANOCOBALAMIN\DEXPANTHENOL\NIACINAMIDE\PYRIDOXINE HYDROCHLORIDE\RIBOFLAVIN 5^-PHOSPHATE SODIUM\THIAMINE HYDROCHLORIDE\VITAMIN B COMPLEX
     Indication: PRODUCT USED FOR UNKNOWN INDICATION
     Dosage: UNK
     Route: 065
  2. RYTARY [Suspect]
     Active Substance: CARBIDOPA\LEVODOPA
     Dosage: 48.75/195 MG, 3 CAPSULES, 3 /DAY
     Route: 048
     Dates: start: 20161129
  3. RYTARY [Suspect]
     Active Substance: CARBIDOPA\LEVODOPA
     Indication: PARKINSON^S DISEASE
     Dosage: (48.75MG/195MG) 2 CAPSULES AT 6AM, 3 CAPSULES AT 11AM, 3 CAPSULES AT 4PM, AND 2 CAPSULES AT 8PM
     Route: 048
     Dates: start: 201611, end: 201611
  4. MELATONIN [Concomitant]
     Active Substance: MELATONIN
     Indication: PRODUCT USED FOR UNKNOWN INDICATION
     Dosage: UNK
     Route: 065
  5. PANTOPRAZOLE [Concomitant]
     Active Substance: PANTOPRAZOLE
     Indication: PRODUCT USED FOR UNKNOWN INDICATION
     Dosage: UNK
     Route: 065
  6. VITAMIN D [Concomitant]
     Active Substance: CHOLECALCIFEROL
     Indication: PRODUCT USED FOR UNKNOWN INDICATION
     Dosage: UNK
     Route: 065
  7. RYTARY [Suspect]
     Active Substance: CARBIDOPA\LEVODOPA
     Dosage: 48.75/195 MG 3 CAPSULES IN MORNING, 2 CAPSULES IN AFTERNOON AND 3 CAPSULES AT BEDTIME
     Route: 048
     Dates: start: 20161204

REACTIONS (7)
  - Confusional state [Unknown]
  - Hallucination [Unknown]
  - Insomnia [Recovering/Resolving]
  - Freezing phenomenon [Recovering/Resolving]
  - Agitation [Unknown]
  - Slow speech [Recovering/Resolving]
  - Delusion [Unknown]

NARRATIVE: CASE EVENT DATE: 20161130
